FAERS Safety Report 19503197 (Version 1)
Quarter: 2021Q3

REPORT INFORMATION
  Report Type: Report from Study
  Country: US (occurrence: US)
  Receive Date: 20210707
  Receipt Date: 20210707
  Transmission Date: 20211014
  Serious: Yes (Hospitalization, Other)
  Sender: FDA-Public Use
  Company Number: US-JNJFOC-20210606615

PATIENT
  Age: 68 Year
  Sex: Female
  Weight: 65.9 kg

DRUGS (4)
  1. OFEV [Concomitant]
     Active Substance: NINTEDANIB
  2. OPSUMIT [Suspect]
     Active Substance: MACITENTAN
     Indication: PRODUCT USED FOR UNKNOWN INDICATION
     Route: 065
     Dates: start: 2019
  3. TADALAFIL. [Concomitant]
     Active Substance: TADALAFIL
  4. SELEXIPAG [Suspect]
     Active Substance: SELEXIPAG
     Indication: PULMONARY ARTERIAL HYPERTENSION
     Route: 048
     Dates: start: 20210217

REACTIONS (7)
  - Unevaluable event [Unknown]
  - Aphasia [Unknown]
  - Mechanical ventilation [Unknown]
  - Dehydration [Unknown]
  - Fall [Unknown]
  - Pulmonary arterial hypertension [Unknown]
  - Atrial fibrillation [Unknown]

NARRATIVE: CASE EVENT DATE: 20210516
